FAERS Safety Report 11596629 (Version 3)
Quarter: 2015Q4

REPORT INFORMATION
  Report Type: Report from Study
  Country: US (occurrence: US)
  Receive Date: 20151006
  Receipt Date: 20151016
  Transmission Date: 20160304
  Serious: Yes (Death, Hospitalization, Other)
  Sender: FDA-Public Use
  Company Number: US-ALEXION PHARMACEUTICALS INC-A201503829

PATIENT
  Sex: Male

DRUGS (3)
  1. SOLIRIS [Suspect]
     Active Substance: ECULIZUMAB
     Indication: HAEMOLYTIC URAEMIC SYNDROME
     Dosage: UNK
     Route: 042
  2. IVIGLOB EX [Concomitant]
     Active Substance: HUMAN IMMUNOGLOBULIN G
     Indication: PRODUCT USED FOR UNKNOWN INDICATION
     Dosage: UNK
     Route: 042
  3. ARGATROBAN. [Concomitant]
     Active Substance: ARGATROBAN
     Indication: PRODUCT USED FOR UNKNOWN INDICATION
     Dosage: UNK
     Route: 065

REACTIONS (8)
  - Atrial fibrillation [Unknown]
  - Platelet count abnormal [Unknown]
  - Nausea [Not Recovered/Not Resolved]
  - Death [Fatal]
  - Unevaluable event [Unknown]
  - Abdominal distension [Not Recovered/Not Resolved]
  - Blood creatinine abnormal [Unknown]
  - Dialysis related complication [Unknown]

NARRATIVE: CASE EVENT DATE: 20150923
